FAERS Safety Report 24894380 (Version 1)
Quarter: 2025Q1

REPORT INFORMATION
  Report Type: Spontaneous
  Country: US (occurrence: None)
  Receive Date: 20250127
  Receipt Date: 20250127
  Transmission Date: 20250409
  Serious: Yes (Disabling)
  Sender: FDA-CTU
  Company Number: None

PATIENT
  Age: 31 Year
  Sex: Male
  Weight: 92.25 kg

DRUGS (1)
  1. CIPROFLOXACIN [Suspect]
     Active Substance: CIPROFLOXACIN
     Indication: Diverticulitis
     Dates: start: 20250109, end: 20250112

REACTIONS (2)
  - Tendonitis [None]
  - Therapy cessation [None]

NARRATIVE: CASE EVENT DATE: 20250127
